FAERS Safety Report 8152557 (Version 2)
Quarter: 2013Q2

REPORT INFORMATION
  Report Type: Spontaneous
  Country: US (occurrence: US)
  Receive Date: 20110922
  Receipt Date: 20130410
  Transmission Date: 20140414
  Serious: Yes (Other)
  Sender: FDA-Public Use
  Company Number: US-ASTRAZENECA-2011SE12691

PATIENT
  Age: 46 Year
  Sex: Male
  Weight: 65.9 kg

DRUGS (13)
  1. SEROQUEL [Suspect]
     Dosage: 100 MG ONE PO BID AND TWO QHS
     Route: 048
     Dates: start: 20050201, end: 20050405
  2. WELLBUTRIN SR [Concomitant]
     Route: 048
     Dates: start: 20050201, end: 20050405
  3. LISINOPRIL HCTZ [Concomitant]
     Dosage: 20/25 MG DAILY
     Dates: start: 20070308
  4. LISINOPRIL HCTZ [Concomitant]
     Route: 048
     Dates: start: 201108
  5. ALBUTEROL [Concomitant]
     Dates: start: 20060413
  6. VYTORIN [Concomitant]
     Dates: start: 20060316, end: 20070308
  7. ISOSORBIDE [Concomitant]
     Dates: start: 20060118, end: 20070308
  8. COUMADIN [Concomitant]
     Dates: end: 201108
  9. PLAQUENIL [Concomitant]
     Dates: start: 201108
  10. LORTAB [Concomitant]
     Dosage: 10 MG-500 MG TAKE 1 TAB 3 TIMES DAILY
     Dates: start: 201108
  11. DEXILANT [Concomitant]
     Route: 048
     Dates: start: 201108
  12. METOPROLOL TARTRATE [Concomitant]
     Route: 048
     Dates: start: 201108
  13. XANAX [Concomitant]
     Dates: start: 201108

REACTIONS (3)
  - Pancreatitis [Unknown]
  - Diabetic coma [Unknown]
  - Type 2 diabetes mellitus [Unknown]
